FAERS Safety Report 11173959 (Version 2)
Quarter: 2015Q2

REPORT INFORMATION
  Report Type: Report from Study
  Country: VE (occurrence: VE)
  Receive Date: 20150609
  Receipt Date: 20150619
  Transmission Date: 20150821
  Serious: Yes (Hospitalization, Other)
  Sender: FDA-Public Use
  Company Number: VE-ABBVIE-15K-178-1402966-00

PATIENT
  Age: 57 Year
  Sex: Male

DRUGS (1)
  1. HUMIRA [Suspect]
     Active Substance: ADALIMUMAB
     Indication: PSORIASIS
     Route: 058
     Dates: start: 20131201, end: 201402

REACTIONS (3)
  - Animal bite [Recovered/Resolved]
  - Wound infection [Recovered/Resolved]
  - Wound abscess [Recovered/Resolved]

NARRATIVE: CASE EVENT DATE: 201505
